FAERS Safety Report 7783437-2 (Version None)
Quarter: 2011Q3

REPORT INFORMATION
  Report Type: 
  Country: None (occurrence: None)
  Receive Date: 20110928
  Receipt Date: 20110928
  Transmission Date: 20111222
  Serious: Yes (Other)
  Sender: FDA-Public Use
  Company Number: None

PATIENT
  Age: 50 Year
  Sex: Male
  Weight: 69.399 kg

DRUGS (2)
  1. TAMSULOSIN HCL [Suspect]
     Indication: TRANSURETHRAL PROSTATECTOMY
     Dosage: .4 MG
     Route: 048
     Dates: start: 20110923, end: 20110925
  2. DUTASTERIDE [Concomitant]
     Dosage: .5 MG
     Route: 048

REACTIONS (12)
  - DIZZINESS [None]
  - IMPAIRED DRIVING ABILITY [None]
  - DYSPNOEA [None]
  - FEAR [None]
  - ACTIVITIES OF DAILY LIVING IMPAIRED [None]
  - ANXIETY [None]
  - SINUS CONGESTION [None]
  - GAIT DISTURBANCE [None]
  - FEELING ABNORMAL [None]
  - DRUG INEFFECTIVE [None]
  - IRRITABILITY [None]
  - FATIGUE [None]
